FAERS Safety Report 12712539 (Version 1)
Quarter: 2016Q3

REPORT INFORMATION
  Report Type: Spontaneous
  Country: US (occurrence: US)
  Receive Date: 20160902
  Receipt Date: 20160902
  Transmission Date: 20161109
  Serious: Yes (Hospitalization)
  Sender: FDA-Public Use
  Company Number: US-PFIZER INC-2016413246

PATIENT
  Age: 20 Year
  Sex: Female

DRUGS (1)
  1. MINOXIDIL. [Suspect]
     Active Substance: MINOXIDIL
     Dosage: 10 MG, (MAXIMUM OF 65 TABLETS)
     Route: 048

REACTIONS (5)
  - Intentional overdose [Recovered/Resolved]
  - Electrocardiogram T wave inversion [Recovered/Resolved]
  - Hypotension [Recovered/Resolved]
  - Electrocardiogram ST segment depression [Recovered/Resolved]
  - Tachycardia [Recovered/Resolved]
